FAERS Safety Report 22053630 (Version 5)
Quarter: 2025Q1

REPORT INFORMATION
  Report Type: Spontaneous
  Country: CA (occurrence: CA)
  Receive Date: 20230302
  Receipt Date: 20250325
  Transmission Date: 20250409
  Serious: Yes (Other)
  Sender: PFIZER
  Company Number: CA-PFIZER INC-202300063777

PATIENT
  Age: 65 Year
  Sex: Male

DRUGS (6)
  1. ABRILADA [Suspect]
     Active Substance: ADALIMUMAB-AFZB
     Indication: Psoriatic arthropathy
     Route: 058
     Dates: start: 20230208
  2. ABRILADA [Suspect]
     Active Substance: ADALIMUMAB-AFZB
     Route: 058
     Dates: start: 2025
  3. METHOTREXATE [Concomitant]
     Active Substance: METHOTREXATE
     Indication: Psoriatic arthropathy
     Route: 065
  4. METHOTREXATE [Concomitant]
     Active Substance: METHOTREXATE
     Dosage: 15 MG, WEEKLY
     Route: 065
     Dates: start: 2020
  5. HYDROXYCHLOROQUINE DIPHOSPHATE [Concomitant]
     Active Substance: HYDROXYCHLOROQUINE DIPHOSPHATE
     Dosage: 400 MG, 1X/DAY
     Route: 065
     Dates: start: 2019
  6. PREDNISONE [Concomitant]
     Active Substance: PREDNISONE
     Route: 065
     Dates: start: 20230109

REACTIONS (7)
  - Cervical spinal stenosis [Unknown]
  - Muscle spasms [Recovered/Resolved]
  - Headache [Not Recovered/Not Resolved]
  - Dizziness [Recovering/Resolving]
  - Feeling drunk [Unknown]
  - Feeling abnormal [Unknown]
  - Condition aggravated [Not Recovered/Not Resolved]

NARRATIVE: CASE EVENT DATE: 20230208
